FAERS Safety Report 5958861-0 (Version None)
Quarter: 2008Q4

REPORT INFORMATION
  Report Type: 
  Country: None (occurrence: None)
  Receive Date: 20081117
  Receipt Date: 20080911
  Transmission Date: 20090506
  Serious: Yes (Other)
  Sender: FDA-Public Use
  Company Number: 2008S1016800

PATIENT
  Sex: Male

DRUGS (5)
  1. METOPROLOL TARTRATE [Suspect]
     Indication: DRUG USE FOR UNKNOWN INDICATION
     Dosage: 7000 MG; ORAL
     Route: 048
  2. ZOLPIDEM TARTRATE [Suspect]
     Indication: DRUG USE FOR UNKNOWN INDICATION
     Dosage: ORAL
     Route: 048
  3. ENAHEXAL /00574902/ (ENALAPRIL MALEATE) [Suspect]
     Indication: DRUG USE FOR UNKNOWN INDICATION
     Dosage: 1000 MG; ORAL
     Route: 048
  4. INSULIN (INSULIN) [Suspect]
     Indication: DRUG USE FOR UNKNOWN INDICATION
  5. VENLAFAXINE HCL [Suspect]
     Indication: DRUG USE FOR UNKNOWN INDICATION
     Dosage: 1500 MG; ORAL
     Route: 048

REACTIONS (2)
  - MULTIPLE DRUG OVERDOSE INTENTIONAL [None]
  - SOMNOLENCE [None]
